FAERS Safety Report 11539664 (Version 1)
Quarter: 2015Q3

REPORT INFORMATION
  Report Type: Spontaneous
  Country: US (occurrence: None)
  Receive Date: 20150922
  Receipt Date: 20150922
  Transmission Date: 20151125
  Serious: Yes (Hospitalization)
  Sender: FDA-Public Use
  Company Number: None

PATIENT

DRUGS (20)
  1. ATORVASTATIN CALCIUM. [Concomitant]
     Active Substance: ATORVASTATIN CALCIUM
  2. LEVOTHYROXINE SODIUM. [Concomitant]
     Active Substance: LEVOTHYROXINE SODIUM
  3. DELSYM [Concomitant]
     Active Substance: DEXTROMETHORPHAN
  4. LEVEMIR [Concomitant]
     Active Substance: INSULIN DETEMIR
  5. WELCHOL [Concomitant]
     Active Substance: COLESEVELAM HYDROCHLORIDE
  6. ONDANSETRON [Concomitant]
     Active Substance: ONDANSETRON
  7. FOSAMAX [Suspect]
     Active Substance: ALENDRONATE SODIUM
     Indication: OSTEOPENIA
     Dosage: 1 PILL
     Route: 048
     Dates: start: 20150730, end: 20150803
  8. BAYER ASPIRIN [Concomitant]
     Active Substance: ASPIRIN
  9. NORVASC [Concomitant]
     Active Substance: AMLODIPINE BESYLATE
  10. HYDROXYZINE PAMOATE. [Concomitant]
     Active Substance: HYDROXYZINE PAMOATE
  11. HUMALOG KWIKPEN [Concomitant]
     Active Substance: INSULIN LISPRO
  12. CITRACAL D3 [Concomitant]
     Active Substance: CALCIUM CITRATE\CHOLECALCIFEROL
  13. THERAGAN-M [Concomitant]
  14. ANASTROZOLE. [Concomitant]
     Active Substance: ANASTROZOLE
  15. ARICEPT [Concomitant]
     Active Substance: DONEPEZIL HYDROCHLORIDE
  16. LISINOPRIL-HYDROCHLOROTHIAZIDE [Concomitant]
     Active Substance: HYDROCHLOROTHIAZIDE\LISINOPRIL
  17. DOCUSATE SODIUM. [Concomitant]
     Active Substance: DOCUSATE SODIUM
  18. PANTOPRAZOLE SODIUM. [Concomitant]
     Active Substance: PANTOPRAZOLE SODIUM
  19. L-METHYLFOLATE-B6-B12 [Concomitant]
  20. CITALOPRAM HYDROBROMIDE. [Concomitant]
     Active Substance: CITALOPRAM HYDROBROMIDE

REACTIONS (6)
  - Arthralgia [None]
  - Vomiting [None]
  - Nausea [None]
  - Constipation [None]
  - Back pain [None]
  - Abdominal discomfort [None]

NARRATIVE: CASE EVENT DATE: 20150810
